FAERS Safety Report 16609999 (Version 2)
Quarter: 2019Q3

REPORT INFORMATION
  Report Type: Report from Study
  Country: US (occurrence: US)
  Receive Date: 20190722
  Receipt Date: 20190918
  Transmission Date: 20191004
  Serious: Yes (Hospitalization)
  Sender: FDA-Public Use
  Company Number: US-JNJFOC-20190717934

PATIENT
  Age: 21 Year
  Sex: Female
  Weight: 47.67 kg

DRUGS (3)
  1. HUMIRA [Concomitant]
     Active Substance: ADALIMUMAB
     Route: 065
     Dates: start: 20071205, end: 2019
  2. INFLIXIMAB, RECOMBINANT [Suspect]
     Active Substance: INFLIXIMAB
     Indication: INFLAMMATORY BOWEL DISEASE
     Route: 042
     Dates: start: 20040223, end: 20071024
  3. ENTYVIO [Concomitant]
     Active Substance: VEDOLIZUMAB
     Route: 065

REACTIONS (2)
  - Blood potassium decreased [Recovered/Resolved]
  - Crohn^s disease [Recovered/Resolved with Sequelae]

NARRATIVE: CASE EVENT DATE: 20190621
